FAERS Safety Report 5211908-1 (Version None)
Quarter: 2007Q1

REPORT INFORMATION
  Report Type: 
  Country: None (occurrence: None)
  Receive Date: 20070118
  Receipt Date: 20070111
  Transmission Date: 20070707
  Serious: Yes (Hospitalization, Other)
  Sender: FDA-Public Use
  Company Number: PHEH2006US14714

PATIENT
  Age: 8 Month
  Sex: Male
  Weight: 11.337 kg

DRUGS (3)
  1. ELIDEL [Suspect]
     Indication: ECZEMA
     Dosage: UNK, UNK
     Dates: start: 20031217
  2. ELOCON [Concomitant]
     Dosage: UNK, UNK
     Dates: start: 20030101
  3. ATARAX [Concomitant]
     Indication: ECZEMA
     Dates: start: 20031216, end: 20041001

REACTIONS (40)
  - ABDOMINAL PAIN [None]
  - ABNORMAL BEHAVIOUR [None]
  - ACUTE LYMPHOCYTIC LEUKAEMIA [None]
  - ANOREXIA [None]
  - BLISTER [None]
  - CENTRAL LINE INFECTION [None]
  - CHILLS [None]
  - CRYING [None]
  - DIARRHOEA [None]
  - DISCOMFORT [None]
  - DRUG HYPERSENSITIVITY [None]
  - DYSURIA [None]
  - EAR DISCOMFORT [None]
  - EAR INFECTION [None]
  - EAR PAIN [None]
  - EAR TUBE INSERTION [None]
  - ERYTHEMA [None]
  - GAIT DISTURBANCE [None]
  - HEART RATE INCREASED [None]
  - INSOMNIA [None]
  - JOINT SPRAIN [None]
  - MUCOSAL INFLAMMATION [None]
  - NEUTROPENIA [None]
  - OTORRHOEA [None]
  - PAIN [None]
  - PAIN IN EXTREMITY [None]
  - PANCYTOPENIA [None]
  - PHARYNGITIS STREPTOCOCCAL [None]
  - PYREXIA [None]
  - RASH [None]
  - RESPIRATORY RATE INCREASED [None]
  - RETCHING [None]
  - SINUSITIS [None]
  - STAPHYLOCOCCAL BACTERAEMIA [None]
  - STOMATITIS [None]
  - VIRAL PHARYNGITIS [None]
  - VIRAL RASH [None]
  - VOMITING [None]
  - WEIGHT DECREASED [None]
  - WHITE BLOOD CELL COUNT DECREASED [None]
